FAERS Safety Report 8399801-7 (Version None)
Quarter: 2012Q2

REPORT INFORMATION
  Report Type: 
  Country: None (occurrence: None)
  Receive Date: 20120531
  Receipt Date: 20120523
  Transmission Date: 20120825
  Serious: Yes (Death)
  Sender: FDA-Public Use
  Company Number: JP-CELGENEUS-087-50794-12053411

PATIENT
  Age: 74 Year
  Sex: Female
  Weight: 68 kg

DRUGS (49)
  1. VIDAZA [Suspect]
     Dosage: 75 MILLIGRAM/SQ. METER
     Route: 041
     Dates: start: 20110924, end: 20110928
  2. ADENOSINE [Concomitant]
     Route: 065
     Dates: end: 20110108
  3. LEVOFLOXACIN [Concomitant]
     Route: 065
     Dates: start: 20110923, end: 20110927
  4. LAMISIL [Concomitant]
     Route: 065
     Dates: start: 20110929, end: 20111015
  5. ALBUMIN TANNATE [Concomitant]
     Route: 065
     Dates: start: 20111026, end: 20111113
  6. POSTERISAN [Concomitant]
     Route: 065
     Dates: start: 20110926, end: 20111021
  7. LAXOBERON [Concomitant]
     Route: 065
     Dates: start: 20110927, end: 20110929
  8. SOLDEM 1 [Concomitant]
     Route: 065
     Dates: start: 20120210, end: 20120214
  9. RAMELTEON [Concomitant]
     Route: 065
     Dates: start: 20120213, end: 20120213
  10. MERISLON [Concomitant]
     Route: 065
     Dates: end: 20111006
  11. CEFACLOR [Concomitant]
     Route: 065
     Dates: start: 20111013, end: 20111021
  12. VITANEURIN [Concomitant]
     Route: 065
     Dates: end: 20111023
  13. SINGULAIR [Concomitant]
     Route: 065
     Dates: end: 20111010
  14. PROGRAF [Concomitant]
     Route: 065
     Dates: end: 20111023
  15. LEVOFLOXACIN [Concomitant]
     Route: 065
     Dates: start: 20111206, end: 20111220
  16. LEVOFLOXACIN [Concomitant]
     Route: 065
     Dates: start: 20111226, end: 20120126
  17. MAGLAX [Concomitant]
     Route: 065
     Dates: start: 20120124, end: 20120214
  18. PRIMPERAN TAB [Concomitant]
     Route: 065
     Dates: start: 20111011, end: 20120210
  19. LAC-B [Concomitant]
     Route: 065
     Dates: start: 20111026, end: 20111213
  20. GRANISETRON [Concomitant]
     Route: 065
     Dates: start: 20110116, end: 20110119
  21. NON-PYRINE COLD PREPARATION [Concomitant]
     Route: 065
     Dates: start: 20120120, end: 20120123
  22. ALLOPURINOL [Concomitant]
     Route: 065
     Dates: start: 20120210, end: 20120214
  23. BIO-THREE [Concomitant]
     Route: 065
     Dates: end: 20111021
  24. CATAPLASMATA [Concomitant]
     Route: 065
     Dates: start: 20110921, end: 20120108
  25. ALLEGRA [Concomitant]
     Route: 065
     Dates: start: 20110921, end: 20120214
  26. GRANISETRON [Concomitant]
     Route: 065
     Dates: start: 20111024, end: 20111101
  27. SODIUM BICARBONATE [Concomitant]
     Route: 065
     Dates: start: 20120213, end: 20120214
  28. DIAMOX [Concomitant]
     Route: 065
     Dates: start: 20120213, end: 20120213
  29. ALFAROL [Concomitant]
     Route: 065
     Dates: end: 20110108
  30. MUCOSTA [Concomitant]
     Route: 065
     Dates: start: 20110921, end: 20120214
  31. MAGLAX [Concomitant]
     Route: 065
     Dates: start: 20110926, end: 20111021
  32. BISOPROLOL FUMARATE [Concomitant]
     Route: 065
     Dates: start: 20110929, end: 20120214
  33. GLYCERIN [Concomitant]
     Route: 065
     Dates: start: 20110929, end: 20110929
  34. DEQUALINIUM CHLORIDE [Concomitant]
     Route: 065
     Dates: start: 20111005, end: 20111006
  35. GRANISETRON [Concomitant]
     Route: 065
     Dates: start: 20111206, end: 20111214
  36. HYDREA [Concomitant]
     Route: 065
     Dates: start: 20120210, end: 20120212
  37. LASIX [Concomitant]
     Route: 065
     Dates: start: 20120213, end: 20120214
  38. VIDAZA [Suspect]
     Dosage: 75 MILLIGRAM/SQ. METER
     Route: 041
     Dates: start: 20111024, end: 20111101
  39. VIDAZA [Suspect]
     Dosage: 75 MILLIGRAM/SQ. METER
     Route: 041
     Dates: start: 20120116, end: 20120119
  40. CYCLOCIDE [Concomitant]
     Dosage: 100 MILLIGRAM
     Route: 065
     Dates: start: 20120213, end: 20120213
  41. OMEPRAZOLE [Concomitant]
     Route: 065
     Dates: start: 20110921, end: 20120214
  42. PRIMPERAN TAB [Concomitant]
     Route: 065
     Dates: start: 20120210, end: 20120210
  43. VIDAZA [Suspect]
     Dosage: 75 MILLIGRAM/SQ. METER
     Route: 058
     Dates: start: 20110922, end: 20110923
  44. VIDAZA [Suspect]
     Dosage: 75 MILLIGRAM/SQ. METER
     Route: 041
     Dates: start: 20111206, end: 20111214
  45. RAMELTEON [Concomitant]
     Route: 065
     Dates: start: 20110922, end: 20110928
  46. ISODINE GARGLE [Concomitant]
     Route: 048
     Dates: start: 20110926, end: 20110926
  47. BUTENAFINE HYDROCHLORIDE [Concomitant]
     Route: 065
     Dates: start: 20110929, end: 20111015
  48. MAXIPIME [Concomitant]
     Route: 065
     Dates: start: 20110927, end: 20111012
  49. POTASSIUM CHLORIDE [Concomitant]
     Route: 065
     Dates: start: 20120211, end: 20120213

REACTIONS (1)
  - LYMPHOCYTE COUNT DECREASED [None]
